FAERS Safety Report 5978410-0 (Version None)
Quarter: 2008Q4

REPORT INFORMATION
  Report Type: 
  Country: None (occurrence: None)
  Receive Date: 20081204
  Receipt Date: 20081127
  Transmission Date: 20090506
  Serious: Yes (Hospitalization)
  Sender: FDA-Public Use
  Company Number: FR-BAYER-200710514BFR

PATIENT
  Age: 75 Year
  Sex: Male

DRUGS (3)
  1. SORAFENIB [Suspect]
     Indication: RENAL CELL CARCINOMA
     Dosage: TOTAL DAILY DOSE: 800 MG  UNIT DOSE: 200 MG
     Route: 048
     Dates: start: 20060410, end: 20070819
  2. INNOHEP [Concomitant]
     Indication: ANOREXIA
     Dates: start: 20060301
  3. NUTRITIONAL SUPPORT [Concomitant]
     Indication: ANOREXIA
     Dates: start: 20060311

REACTIONS (1)
  - RENAL FAILURE [None]
